FAERS Safety Report 5010475-5 (Version None)
Quarter: 2006Q2

REPORT INFORMATION
  Report Type: 
  Country: None (occurrence: None)
  Receive Date: 20060523
  Receipt Date: 20060509
  Transmission Date: 20061013
  Serious: Yes (Disabling, Other)
  Sender: FDA-Public Use
  Company Number: 2006BH009534

PATIENT
  Sex: 0

DRUGS (1)
  1. MORPHINE SULFATE [Suspect]
     Indication: PAIN
     Dosage: 1 GM; INTH
     Route: 037

REACTIONS (6)
  - ANOXIA [None]
  - BURNING SENSATION [None]
  - CONVULSION [None]
  - NERVOUS SYSTEM DISORDER [None]
  - SOMNOLENCE [None]
  - WRONG TECHNIQUE IN DRUG USAGE PROCESS [None]
